FAERS Safety Report 9411458 (Version 1)
Quarter: 2013Q3

REPORT INFORMATION
  Report Type: Spontaneous
  Country: IN (occurrence: IN)
  Receive Date: 20130722
  Receipt Date: 20130722
  Transmission Date: 20140515
  Serious: Yes (Hospitalization)
  Sender: FDA-Public Use
  Company Number: IN-PFIZER INC-2013210610

PATIENT
  Sex: Female

DRUGS (2)
  1. DOXORUBICIN HCL [Suspect]
     Indication: BREAST CANCER
     Dosage: UNK
  2. EPIRUBICIN HCL [Suspect]
     Indication: BREAST CANCER
     Dosage: UNK

REACTIONS (2)
  - Extravasation [Unknown]
  - Skin discolouration [Unknown]
